FAERS Safety Report 7241391-6 (Version None)
Quarter: 2011Q1

REPORT INFORMATION
  Report Type: 
  Country: None (occurrence: None)
  Receive Date: 20110120
  Receipt Date: 20110120
  Transmission Date: 20110831
  Serious: Yes (Life-Threatening)
  Sender: FDA-Public Use
  Company Number: None

PATIENT
  Age: 58 Year
  Sex: Female
  Weight: 76.4 kg

DRUGS (6)
  1. CRESTOR [Suspect]
  2. CALCIUM GLUCONATE [Concomitant]
  3. RECLAST [Concomitant]
  4. M.V.I. [Concomitant]
  5. TAMOXIFEN CITRATE [Suspect]
     Indication: BREAST CANCER
     Dosage: TAMOXIFEN 20MG DAILY ORAL
     Route: 048
     Dates: start: 20070201, end: 20101101
  6. XANAX [Concomitant]

REACTIONS (1)
  - UTERINE CANCER [None]
